FAERS Safety Report 8237838-9 (Version None)
Quarter: 2012Q1

REPORT INFORMATION
  Report Type: 
  Country: None (occurrence: None)
  Receive Date: 20120327
  Receipt Date: 20120315
  Transmission Date: 20120608
  Serious: Yes (Hospitalization, Other)
  Sender: FDA-Public Use
  Company Number: AR-AMGEN-ARGSP2011020000

PATIENT
  Age: 64 Year
  Sex: Female
  Weight: 48 kg

DRUGS (3)
  1. DICLOFENAC SODIUM [Concomitant]
     Dosage: UNK
     Route: 048
     Dates: start: 20090101
  2. ENBREL [Suspect]
     Indication: RHEUMATOID ARTHRITIS
     Dosage: 25 MG, WEEKLY
     Route: 058
     Dates: start: 20061104, end: 20101201
  3. PREDNISONE TAB [Concomitant]
     Dosage: UNK
     Route: 048
     Dates: start: 20090101

REACTIONS (5)
  - FISTULA [None]
  - ESCHAR [None]
  - LOCALISED INFECTION [None]
  - INTESTINAL OBSTRUCTION [None]
  - IMMUNE SYSTEM DISORDER [None]
